FAERS Safety Report 5381213-1 (Version None)
Quarter: 2007Q3

REPORT INFORMATION
  Report Type: 
  Country: None (occurrence: None)
  Receive Date: 20070706
  Receipt Date: 20070626
  Transmission Date: 20080115
  Serious: Yes (Hospitalization)
  Sender: FDA-Public Use
  Company Number: FR-PFIZER INC-2007053297

PATIENT
  Age: 77 Year
  Sex: Male

DRUGS (10)
  1. LYRICA [Suspect]
     Indication: PHANTOM PAIN
     Route: 048
     Dates: start: 20060915, end: 20061003
  2. TRINIPATCH [Concomitant]
  3. SERTRALINE HYDROCHLORIDE [Concomitant]
  4. BISOPROLOL FUMARATE [Concomitant]
  5. NEXIUM [Concomitant]
  6. PRAVASTATIN [Concomitant]
  7. ASPIRIN [Concomitant]
  8. METFORMIN HCL [Concomitant]
  9. LORAZEPAM [Concomitant]
  10. TRIVASTAL [Concomitant]

REACTIONS (3)
  - CONFUSIONAL STATE [None]
  - FAECAL INCONTINENCE [None]
  - URINARY INCONTINENCE [None]
